FAERS Safety Report 4581799-0 (Version None)
Quarter: 2005Q1

REPORT INFORMATION
  Report Type: 
  Country: None (occurrence: None)
  Receive Date: 20050214
  Receipt Date: 20040305
  Transmission Date: 20050727
  Serious: No
  Sender: FDA-Public Use
  Company Number: US-GLAXOSMITHKLINE-A0501408A

PATIENT
  Age: 28 Year
  Sex: Female

DRUGS (4)
  1. LAMICTAL [Suspect]
     Indication: EPILEPSY
     Dosage: 25MG TWICE PER DAY
     Route: 048
     Dates: start: 20040220
  2. KEPPRA [Concomitant]
  3. CIPRO [Concomitant]
  4. PYRIDIUM [Concomitant]

REACTIONS (2)
  - GENITAL PRURITUS FEMALE [None]
  - RASH [None]
